FAERS Safety Report 6842250-0 (Version None)
Quarter: 2010Q3

REPORT INFORMATION
  Report Type: 
  Country: None (occurrence: None)
  Receive Date: 20100714
  Receipt Date: 20070723
  Transmission Date: 20110219
  Serious: No
  Sender: FDA-Public Use
  Company Number: US-PFIZER INC-2007062741

PATIENT
  Sex: Male
  Weight: 86.2 kg

DRUGS (4)
  1. CHANTIX [Suspect]
     Indication: SMOKING CESSATION THERAPY
     Route: 048
     Dates: start: 20070710, end: 20070715
  2. METOPROLOL [Concomitant]
  3. SIMVASTATIN [Concomitant]
     Dosage: EVERY EVENING PRIOR TO BEDTIME
  4. ESZOPICLONE [Concomitant]

REACTIONS (3)
  - CONSTIPATION [None]
  - INSOMNIA [None]
  - SLEEP TERROR [None]
